FAERS Safety Report 16655699 (Version 1)
Quarter: 2019Q3

REPORT INFORMATION
  Report Type: Spontaneous
  Country: GB (occurrence: GB)
  Receive Date: 20190801
  Receipt Date: 20190801
  Transmission Date: 20191004
  Serious: Yes (Disabling, Other)
  Sender: FDA-Public Use
  Company Number: PHHY2019GB174735

PATIENT
  Age: 59 Year
  Sex: Female
  Weight: 76 kg

DRUGS (6)
  1. SLOZEM [Suspect]
     Active Substance: DILTIAZEM
     Indication: MICROVASCULAR CORONARY ARTERY DISEASE
     Dosage: 240 MG, UNK (REDUCED TO 180MG 17/5/19 THEN REDUCED TO 120MG 19/6/19 THEN STOPPED 26/6/19)
     Route: 048
  2. INSULIN [Concomitant]
     Active Substance: INSULIN NOS
     Indication: PRODUCT USED FOR UNKNOWN INDICATION
     Route: 065
  3. SUKKARTO [Suspect]
     Active Substance: METFORMIN HYDROCHLORIDE
     Indication: INSULIN RESISTANCE
     Dosage: 500 MG, UNK
     Route: 048
     Dates: start: 20190304, end: 20190619
  4. ATORVASTATIN [Suspect]
     Active Substance: ATORVASTATIN
     Indication: PRODUCT USED FOR UNKNOWN INDICATION
     Dosage: 10 MG, UNK
     Route: 048
     Dates: start: 20180320, end: 20190625
  5. SLOZEM [Suspect]
     Active Substance: DILTIAZEM
     Dosage: 180 MG, UNK (240 MG REDUCED TO 180MG 17/5/19 THEN REDUCED TO 120 MG 19/6/19 THEN STOPPED 26/6/19)
     Route: 048
     Dates: start: 20190517, end: 20190619
  6. SLOZEM [Suspect]
     Active Substance: DILTIAZEM
     Dosage: 120 MG, UNK
     Route: 048
     Dates: start: 20190619, end: 20190626

REACTIONS (33)
  - Hypopnoea [Unknown]
  - Body temperature decreased [Unknown]
  - Dizziness [Not Recovered/Not Resolved]
  - Asthenia [Not Recovered/Not Resolved]
  - Cough [Unknown]
  - Fatigue [Unknown]
  - Labelled drug-drug interaction medication error [Unknown]
  - Nausea [Unknown]
  - Arthralgia [Unknown]
  - Headache [Unknown]
  - Feeling cold [Unknown]
  - Somnolence [Unknown]
  - Restless legs syndrome [Unknown]
  - Muscle spasms [Unknown]
  - Abnormal loss of weight [Unknown]
  - Pruritus [Unknown]
  - Insomnia [Unknown]
  - Abdominal pain upper [Unknown]
  - Bradycardia [Unknown]
  - Pollakiuria [Unknown]
  - Memory impairment [Unknown]
  - Blood glucose increased [Unknown]
  - Hypotension [Not Recovered/Not Resolved]
  - Hepatic pain [Unknown]
  - Tremor [Unknown]
  - Confusional state [Unknown]
  - Dyspepsia [Unknown]
  - Back pain [Unknown]
  - Stomatitis [Unknown]
  - Neck pain [Unknown]
  - Hypoaesthesia oral [Unknown]
  - Abdominal distension [Unknown]
  - Hypoaesthesia [Unknown]

NARRATIVE: CASE EVENT DATE: 20190401
